FAERS Safety Report 16058890 (Version 1)
Quarter: 2019Q1

REPORT INFORMATION
  Report Type: Spontaneous
  Country: US (occurrence: US)
  Receive Date: 20190311
  Receipt Date: 20190311
  Transmission Date: 20190418
  Serious: Yes (Other)
  Sender: FDA-Public Use
  Company Number: US-PFIZER INC-2019102125

PATIENT
  Age: 17 Year
  Weight: 68 kg

DRUGS (3)
  1. LORAZEPAM. [Suspect]
     Active Substance: LORAZEPAM
     Indication: AGITATION
     Dosage: 4 MG, UNK
     Route: 042
  2. CHARCOAL [Concomitant]
     Active Substance: ACTIVATED CHARCOAL
     Dosage: UNK
     Route: 045
  3. DIPHENHYDRAMINE. [Concomitant]
     Active Substance: DIPHENHYDRAMINE
     Indication: INTENTIONAL PRODUCT MISUSE
     Dosage: 25 MG, UNK (ESTIMATED 3 G)
     Route: 048

REACTIONS (1)
  - Upper airway obstruction [Recovered/Resolved]
